FAERS Safety Report 8077824-5 (Version None)
Quarter: 2012Q1

REPORT INFORMATION
  Report Type: 
  Country: None (occurrence: None)
  Receive Date: 20120127
  Receipt Date: 20120124
  Transmission Date: 20120608
  Serious: Yes (Hospitalization)
  Sender: FDA-Public Use
  Company Number: US-PFIZER INC-2012020013

PATIENT
  Sex: Female
  Weight: 78.9 kg

DRUGS (6)
  1. SYNTHROID [Concomitant]
     Indication: HYPOTHYROIDISM
     Dosage: UNK
  2. LYRICA [Suspect]
     Indication: MUSCULOSKELETAL PAIN
  3. BENICAR [Concomitant]
     Indication: HYPERTENSION
     Dosage: UNK
  4. LYRICA [Suspect]
     Indication: FIBROMYALGIA
     Dosage: 75 MG, 1X/DAY
     Route: 048
  5. LYRICA [Suspect]
     Indication: PAIN
  6. LYRICA [Suspect]
     Indication: BACK PAIN

REACTIONS (4)
  - FEELING ABNORMAL [None]
  - FALL [None]
  - MIDDLE INSOMNIA [None]
  - ARTERIAL OCCLUSIVE DISEASE [None]
